FAERS Safety Report 9230102 (Version 1)
Quarter: 2013Q2

REPORT INFORMATION
  Report Type: Spontaneous
  Country: US (occurrence: None)
  Receive Date: 20130411
  Receipt Date: 20130411
  Transmission Date: 20140414
  Serious: Yes (Hospitalization, Other)
  Sender: FDA-Public Use
  Company Number: JPI-P-030028

PATIENT
  Age: 54 Year
  Sex: Female
  Weight: 53.52 kg

DRUGS (15)
  1. XYREM [Suspect]
     Indication: INSOMNIA
     Dosage: 4 GM (4GM, 1 IN 1 D), ORAL
     Route: 048
     Dates: start: 20130203, end: 20130203
  2. FLUCONAZOLE [Suspect]
     Indication: CANDIDA INFECTION
     Dates: start: 20130103, end: 20130217
  3. PROMETHAZINE [Concomitant]
  4. PROCHLORPERAZINE [Concomitant]
  5. ONDANSETRON [Concomitant]
  6. VALIUM [Concomitant]
  7. ALPRAZOLAM [Concomitant]
  8. PROGESTERONE [Concomitant]
  9. ESTRADIOL TRANSDERMAL [Concomitant]
  10. LEVOTHYROXINE SODIUM [Concomitant]
  11. NITROFURANTOIN MACROCRYSTALS [Concomitant]
  12. SUMATRIPTAN [Concomitant]
  13. ZOLMITRIPTAN [Concomitant]
  14. KETOPROFEN [Concomitant]
  15. CHLORZOXAZONE [Suspect]

REACTIONS (12)
  - Nausea [None]
  - Headache [None]
  - Somnolence [None]
  - Blood pressure increased [None]
  - Chapped lips [None]
  - Skin exfoliation [None]
  - Liver function test abnormal [None]
  - Dizziness [None]
  - Insomnia [None]
  - Rash papular [None]
  - Bone graft [None]
  - Dry mouth [None]
